FAERS Safety Report 21289804 (Version 1)
Quarter: 2022Q3

REPORT INFORMATION
  Report Type: Spontaneous
  Country: US (occurrence: US)
  Receive Date: 20220902
  Receipt Date: 20220902
  Transmission Date: 20221026
  Serious: Yes (Hospitalization, Other)
  Sender: FDA-Public Use
  Company Number: US-BRISTOL-MYERS SQUIBB COMPANY-2022-099520

PATIENT
  Age: 90 Year
  Sex: Female

DRUGS (1)
  1. ELIQUIS [Suspect]
     Active Substance: APIXABAN
     Indication: Product used for unknown indication
     Dosage: 1 TABLET TWICE DAILY
     Route: 048

REACTIONS (16)
  - Encephalopathy [Unknown]
  - Sepsis [Unknown]
  - Urinary tract infection [Unknown]
  - Troponin increased [Unknown]
  - Acute kidney injury [Unknown]
  - Dehydration [Unknown]
  - Gait disturbance [Unknown]
  - Confusional state [Unknown]
  - Fatigue [Unknown]
  - Back pain [Unknown]
  - Memory impairment [Unknown]
  - Hypokalaemia [Unknown]
  - Thrombocytopenia [Unknown]
  - Cardiomegaly [Unknown]
  - Hyperlipidaemia [Unknown]
  - Hypothyroidism [Unknown]

NARRATIVE: CASE EVENT DATE: 20220301
